FAERS Safety Report 7786793-4 (Version None)
Quarter: 2011Q3

REPORT INFORMATION
  Report Type: 
  Country: None (occurrence: None)
  Receive Date: 20110929
  Receipt Date: 20110920
  Transmission Date: 20111222
  Serious: No
  Sender: FDA-Public Use
  Company Number: US-B.I. PHARMACEUTICALS,INC./RIDGEFIELD-2011-BP-22596BP

PATIENT
  Sex: Female

DRUGS (15)
  1. FUROSEMIDE [Concomitant]
     Indication: FLUID RETENTION
     Dosage: 80 MG
     Route: 048
     Dates: start: 19850101
  2. VITAMIN D / CALCIUM [Concomitant]
     Indication: OSTEOPOROSIS
     Dosage: 1200 MG
     Route: 048
     Dates: start: 19850101
  3. VENTOLIN DS [Concomitant]
     Indication: CHRONIC OBSTRUCTIVE PULMONARY DISEASE
     Route: 055
     Dates: start: 19900101
  4. SPIRIVA [Concomitant]
     Indication: CHRONIC OBSTRUCTIVE PULMONARY DISEASE
     Dosage: 18 MCG
     Route: 055
     Dates: start: 19900101
  5. ZANTAC [Concomitant]
     Indication: FLUID RETENTION
     Dosage: 300 MG
     Route: 048
     Dates: start: 19900101
  6. ALBUTEROL [Concomitant]
     Indication: CHRONIC OBSTRUCTIVE PULMONARY DISEASE
     Dosage: 18 MCG
     Route: 055
     Dates: start: 19900101
  7. SINGULAIR [Concomitant]
     Indication: NASAL DISORDER
     Dosage: 10 MG
     Route: 048
     Dates: start: 19900101
  8. SPIRONOLACTONE [Concomitant]
     Indication: FLUID RETENTION
     Dosage: 50 MG
     Route: 048
     Dates: start: 19900101
  9. THEOPHYLLINE [Concomitant]
     Indication: CHRONIC OBSTRUCTIVE PULMONARY DISEASE
     Dosage: 400 MG
     Route: 048
  10. COLACE [Concomitant]
     Indication: CONSTIPATION
     Dosage: 200 MG
     Route: 048
     Dates: start: 20110201
  11. ASPIRIN [Concomitant]
     Indication: PROPHYLAXIS
     Dosage: 325 MG
     Route: 048
     Dates: start: 20110201
  12. PRADAXA [Suspect]
     Indication: ATRIAL FIBRILLATION
     Dosage: 300 MG
     Route: 048
     Dates: start: 20110301
  13. SUPPLEMENTAL OXYGEN [Concomitant]
     Indication: CHRONIC OBSTRUCTIVE PULMONARY DISEASE
     Dosage: 1200 MG
     Route: 048
     Dates: start: 19850101
  14. ADVAIR DISKUS 100/50 [Concomitant]
     Indication: CHRONIC OBSTRUCTIVE PULMONARY DISEASE
     Route: 055
     Dates: start: 19900101
  15. MELATONIN [Concomitant]
     Indication: INSOMNIA
     Dosage: 5 MG
     Route: 048
     Dates: start: 20110201

REACTIONS (1)
  - BLISTER [None]
